FAERS Safety Report 12203862 (Version 1)
Quarter: 2016Q1

REPORT INFORMATION
  Report Type: Report from Study
  Country: US (occurrence: US)
  Receive Date: 20160323
  Receipt Date: 20160323
  Transmission Date: 20160526
  Serious: No
  Sender: FDA-Public Use
  Company Number: PHEH2016US006645

PATIENT
  Age: 71 Year
  Sex: Female

DRUGS (1)
  1. VOTRIENT [Suspect]
     Active Substance: PAZOPANIB HYDROCHLORIDE
     Indication: RENAL CANCER
     Dosage: 200 MG, TID
     Route: 048
     Dates: start: 20160101

REACTIONS (5)
  - Retching [Unknown]
  - Vomiting [Recovering/Resolving]
  - Abdominal discomfort [Unknown]
  - Fatigue [Recovering/Resolving]
  - Weight decreased [Recovering/Resolving]

NARRATIVE: CASE EVENT DATE: 20160101
